FAERS Safety Report 6848260-1 (Version None)
Quarter: 2010Q3

REPORT INFORMATION
  Report Type: 
  Country: None (occurrence: None)
  Receive Date: 20100716
  Receipt Date: 20100712
  Transmission Date: 20110219
  Serious: Yes (Other)
  Sender: FDA-Public Use
  Company Number: JP-ROCHE-703635

PATIENT
  Sex: Female
  Weight: 50 kg

DRUGS (22)
  1. ACTEMRA [Suspect]
     Indication: RHEUMATOID ARTHRITIS
     Route: 041
     Dates: start: 20080704, end: 20080704
  2. ACTEMRA [Suspect]
     Route: 041
     Dates: start: 20080801, end: 20080801
  3. ACTEMRA [Suspect]
     Route: 041
     Dates: start: 20080829, end: 20080829
  4. ACTEMRA [Suspect]
     Route: 041
     Dates: start: 20080926, end: 20080926
  5. ACTEMRA [Suspect]
     Route: 041
     Dates: start: 20081024, end: 20081024
  6. ACTEMRA [Suspect]
     Route: 041
     Dates: start: 20081121, end: 20081121
  7. ACTEMRA [Suspect]
     Route: 041
     Dates: start: 20081219, end: 20081219
  8. ACTEMRA [Suspect]
     Route: 041
     Dates: start: 20090116, end: 20090116
  9. ACTEMRA [Suspect]
     Route: 041
     Dates: start: 20090213, end: 20090213
  10. ACTEMRA [Suspect]
     Route: 041
     Dates: start: 20090316, end: 20100428
  11. PREDNISOLONE [Suspect]
     Indication: RHEUMATOID ARTHRITIS
     Dosage: FORM: PERORAL AGENT
     Route: 048
     Dates: start: 20080828, end: 20080925
  12. PREDNISOLONE [Suspect]
     Route: 048
     Dates: start: 20080926, end: 20081023
  13. PREDNISOLONE [Suspect]
     Route: 048
     Dates: start: 20081024, end: 20081120
  14. PREDNISOLONE [Suspect]
     Route: 048
     Dates: start: 20081121, end: 20081218
  15. PREDNISOLONE [Suspect]
     Dosage: PREORAL AGENT
     Route: 048
     Dates: start: 20081219, end: 20090609
  16. RHEUMATREX [Suspect]
     Indication: RHEUMATOID ARTHRITIS
     Route: 048
     Dates: end: 20090116
  17. RHEUMATREX [Suspect]
     Route: 048
     Dates: start: 20090117, end: 20090213
  18. METHOTREXATE [Suspect]
     Indication: RHEUMATOID ARTHRITIS
     Dosage: FORM: PERORAL AGENT
     Route: 048
     Dates: start: 20080509, end: 20080926
  19. FOLIAMIN [Concomitant]
     Dosage: FORM: PERORAL AGENT
     Route: 048
     Dates: end: 20090220
  20. LOXONIN [Concomitant]
     Dosage: FORM: PERORAL AGENT
     Route: 048
     Dates: start: 20080423, end: 20080606
  21. VOLTAREN [Concomitant]
     Route: 054
     Dates: start: 20080523, end: 20080704
  22. GASTER D [Concomitant]
     Route: 048
     Dates: start: 20080606, end: 20090220

REACTIONS (2)
  - NEUTROPENIA [None]
  - THROMBOCYTOPENIC PURPURA [None]
